FAERS Safety Report 7629334-4 (Version None)
Quarter: 2011Q3

REPORT INFORMATION
  Report Type: 
  Country: None (occurrence: None)
  Receive Date: 20110722
  Receipt Date: 20110707
  Transmission Date: 20111222
  Serious: Yes (Other)
  Sender: FDA-Public Use
  Company Number: GB-BAYER-2011-061518

PATIENT
  Age: 61 Year
  Sex: Female

DRUGS (11)
  1. DICLOFENAC [Concomitant]
  2. CITALOPRAM HYDROBROMIDE [Concomitant]
  3. OXYBUTYNIN [Concomitant]
  4. ACETAMINOPHEN [Suspect]
     Indication: PRODUCT USED FOR UNKNOWN INDICATION
     Dosage: DAILY DOSE 8 DF
     Route: 065
  5. TRAMADOL HCL [Suspect]
     Indication: PRODUCT USED FOR UNKNOWN INDICATION
     Dosage: DAILY DOSE 8 DF
     Route: 065
  6. VENTOLIN HFA [Concomitant]
  7. NAPROXEN SODIUM [Suspect]
     Indication: PRODUCT USED FOR UNKNOWN INDICATION
     Dosage: 500 MG, BID
     Route: 065
  8. AMITRIPTYLINE HCL [Suspect]
     Indication: PRODUCT USED FOR UNKNOWN INDICATION
     Dosage: 10 MG, UNK
     Route: 065
  9. MISOPROSTOL [Suspect]
     Indication: PRODUCT USED FOR UNKNOWN INDICATION
     Dosage: 500 MG, BID
     Route: 065
  10. LANSOPRAZOLE [Concomitant]
  11. SERETIDE [Concomitant]

REACTIONS (4)
  - OSTEOARTHRITIS [None]
  - IDIOPATHIC THROMBOCYTOPENIC PURPURA [None]
  - ASTHMA [None]
  - RHEUMATOID ARTHRITIS [None]
